FAERS Safety Report 9881426 (Version 2)
Quarter: 2014Q1

REPORT INFORMATION
  Report Type: Spontaneous
  Country: AU (occurrence: AU)
  Receive Date: 20140207
  Receipt Date: 20140218
  Transmission Date: 20141002
  Serious: Yes (Hospitalization, Other)
  Sender: FDA-Public Use
  Company Number: AU-B.I. PHARMACEUTICALS,INC./RIDGEFIELD-2014-BI-05053AU

PATIENT
  Age: 74 Year
  Sex: Male

DRUGS (3)
  1. PRADAXA [Suspect]
     Indication: CORONARY ARTERIAL STENT INSERTION
     Dosage: 220 MG
     Dates: start: 20120928
  2. PRADAXA [Suspect]
  3. METHYLBLASTIN [Concomitant]
     Dates: start: 20121005

REACTIONS (4)
  - Ischaemic stroke [Unknown]
  - Transient ischaemic attack [Recovered/Resolved]
  - Hypoaesthesia [Recovered/Resolved with Sequelae]
  - Off label use [Unknown]
